FAERS Safety Report 18181609 (Version 1)
Quarter: 2020Q3

REPORT INFORMATION
  Report Type: Spontaneous
  Country: ES (occurrence: ES)
  Receive Date: 20200821
  Receipt Date: 20200821
  Transmission Date: 20201103
  Serious: Yes (Life-Threatening, Hospitalization)
  Sender: FDA-Public Use
  Company Number: ES-CADILA HEALTHCARE LIMITED-ES-ZYDUS-028762

PATIENT

DRUGS (4)
  1. PARACETAMOL [Suspect]
     Active Substance: ACETAMINOPHEN
     Indication: SUICIDE ATTEMPT
     Dosage: 12 GRAM,(INTERVAL :1 TOTAL)
     Route: 048
     Dates: start: 20171201, end: 20171201
  2. ESCITALOPRAM [Suspect]
     Active Substance: ESCITALOPRAM OXALATE
     Indication: SUICIDE ATTEMPT
     Route: 048
     Dates: start: 20171201, end: 20171201
  3. IBUPROFEN. [Suspect]
     Active Substance: IBUPROFEN
     Indication: SUICIDE ATTEMPT
     Dosage: 2800 MILLIGRAM,(INTERVAL :1 TOTAL)
     Route: 048
     Dates: start: 20171201, end: 20171201
  4. EXFORGE [Suspect]
     Active Substance: AMLODIPINE BESYLATE\VALSARTAN
     Indication: SUICIDE ATTEMPT
     Dosage: 5 DOSAGE FORM,5 CPS ; IN TOTAL,(INTERVAL :1 TOTAL)
     Route: 048
     Dates: start: 20171201, end: 20171201

REACTIONS (2)
  - Hepatitis [Recovered/Resolved]
  - Hypocoagulable state [Recovered/Resolved]

NARRATIVE: CASE EVENT DATE: 20171202
